FAERS Safety Report 7352578-6 (Version None)
Quarter: 2011Q1

REPORT INFORMATION
  Report Type: 
  Country: None (occurrence: None)
  Receive Date: 20110302
  Receipt Date: 20101203
  Transmission Date: 20110831
  Serious: Yes (Other)
  Sender: FDA-Public Use
  Company Number: 258462USA

PATIENT
  Age: 63 Year
  Sex: Female

DRUGS (16)
  1. METOPROLOL [Concomitant]
  2. HYDROCHLOROTHIAZIDE [Concomitant]
  3. LEVIMIR [Concomitant]
  4. PYRIDOSTIGMINE BROMIDE [Concomitant]
  5. PREDNISONE [Concomitant]
  6. ESOMEPRAZOLE MAGNESIUM [Concomitant]
  7. ARTHROTEC [Concomitant]
  8. VENLAFAXINE [Concomitant]
  9. METFORMIN [Concomitant]
  10. DARIFENACIN HYDROBROMIDE [Concomitant]
  11. MYCOPHENOLATE MOFETIL [Suspect]
     Indication: MYASTHENIA GRAVIS
     Dosage: 2000 MG (1000 MG, 2 IN 1 D)
     Dates: start: 20101120
  12. AMRIX [Concomitant]
  13. DILTIAZEM [Concomitant]
  14. CLONAZEPAM [Concomitant]
  15. SIMVASTATIN [Concomitant]
  16. INSULIN ASPART [Concomitant]

REACTIONS (2)
  - DYSPNOEA [None]
  - RASH [None]
